FAERS Safety Report 7761909-4 (Version None)
Quarter: 2011Q3

REPORT INFORMATION
  Report Type: 
  Country: None (occurrence: None)
  Receive Date: 20110920
  Receipt Date: 20110907
  Transmission Date: 20111222
  Serious: No
  Sender: FDA-Public Use
  Company Number: US-ELI_LILLY_AND_COMPANY-US201109003380

PATIENT
  Sex: Male

DRUGS (2)
  1. CIALIS [Suspect]
     Dosage: UNK, QD
  2. BENADRYL [Concomitant]

REACTIONS (2)
  - CYANOPSIA [None]
  - NO THERAPEUTIC RESPONSE [None]
